FAERS Safety Report 22663007 (Version 3)
Quarter: 2023Q4

REPORT INFORMATION
  Report Type: Report from Study
  Country: BE (occurrence: BE)
  Receive Date: 20230703
  Receipt Date: 20231219
  Transmission Date: 20240110
  Serious: Yes (Hospitalization)
  Sender: FDA-Public Use
  Company Number: BE-ABBVIE-4317823

PATIENT
  Age: 78 Year
  Sex: Male

DRUGS (17)
  1. CARBIDOPA\LEVODOPA [Suspect]
     Active Substance: CARBIDOPA\LEVODOPA
     Indication: Parkinson^s disease
     Route: 050
     Dates: start: 20220809, end: 20220818
  2. CARBIDOPA\LEVODOPA [Suspect]
     Active Substance: CARBIDOPA\LEVODOPA
     Dosage: MD: 4.0 ML, CD: 2.4 ML/H, ED: 1.0 ML DURING 16 HOURS
     Route: 050
     Dates: start: 20220819, end: 20220831
  3. CARBIDOPA\LEVODOPA [Suspect]
     Active Substance: CARBIDOPA\LEVODOPA
     Dosage: MD: 4.0 ML, CD: 2.2 ML/H, ED: 1.5 ML DURING 16 HOURS
     Route: 050
     Dates: start: 20220906, end: 20221021
  4. CARBIDOPA\LEVODOPA [Suspect]
     Active Substance: CARBIDOPA\LEVODOPA
     Dosage: MD: 4.0 ML, CD: 2.6 ML/H, ED: 1.0 ML DURING 16 HOURS
     Route: 050
     Dates: start: 20220818, end: 20220819
  5. CARBIDOPA\LEVODOPA [Suspect]
     Active Substance: CARBIDOPA\LEVODOPA
     Dosage: MD: 4.0 ML, CD: 2.1 ML/H, ED: 1.0 ML DURING 16 HOURS
     Route: 050
     Dates: start: 20220831, end: 20220906
  6. CARBIDOPA\LEVODOPA [Suspect]
     Active Substance: CARBIDOPA\LEVODOPA
     Dosage: MD: 4.5 ML, CD: 2.5 ML/H, ED: 1.7 ML DURING 16 HOURS
     Route: 050
     Dates: start: 20221118, end: 20221118
  7. CARBIDOPA\LEVODOPA [Suspect]
     Active Substance: CARBIDOPA\LEVODOPA
     Dosage: MD: 4.5 ML, CD: 2.5 ML/H, ED: 1.7 ML DURING 16 HOURS
     Route: 050
     Dates: start: 20221118, end: 20230221
  8. CARBIDOPA\LEVODOPA [Suspect]
     Active Substance: CARBIDOPA\LEVODOPA
     Dosage: MD: 4.5 ML, CD: 2.7 ML/H, ED: 2.0 ML DURING 16 HOURS
     Route: 050
     Dates: start: 20230221, end: 202303
  9. CARBIDOPA\LEVODOPA [Suspect]
     Active Substance: CARBIDOPA\LEVODOPA
     Dosage: MD: 4.5 ML, CD: 2.5 ML/H, ED: 1.5 ML DURING 16 HOURS
     Route: 050
     Dates: start: 20221021, end: 20221118
  10. CARBIDOPA\LEVODOPA [Suspect]
     Active Substance: CARBIDOPA\LEVODOPA
     Route: 050
     Dates: start: 202303, end: 202309
  11. CARBIDOPA\LEVODOPA [Suspect]
     Active Substance: CARBIDOPA\LEVODOPA
     Dosage: MD: 4.5 ML, CD: 2.6 ML/H, ED: 2.7ML DURING 16 HOURS
     Route: 050
     Dates: start: 20231212
  12. CARBIDOPA\LEVODOPA [Suspect]
     Active Substance: CARBIDOPA\LEVODOPA
     Dosage: MD: 4.5 ML, CD: 2.6 ML/H, ED: 2.7ML DURING 16 HOURS
     Route: 050
     Dates: start: 20230920, end: 20231212
  13. PRAMIPEXOLE [Concomitant]
     Active Substance: PRAMIPEXOLE
     Indication: Parkinson^s disease
     Dosage: 3.15 UNKNOWN
     Route: 065
  14. BENSERAZIDE\LEVODOPA [Concomitant]
     Active Substance: BENSERAZIDE\LEVODOPA
     Indication: Parkinson^s disease
     Dosage: 0.5 UNKNOWN 250 UNKNOWN
  15. BENSERAZIDE\LEVODOPA [Concomitant]
     Active Substance: BENSERAZIDE\LEVODOPA
     Indication: Parkinson^s disease
     Dosage: 0.5 UNKNOWN 250 UNKNOWN
  16. BENSERAZIDE\LEVODOPA [Concomitant]
     Active Substance: BENSERAZIDE\LEVODOPA
     Indication: Parkinson^s disease
     Dosage: 0.5 UNKNOWN 250 UNKNOWN?FREQUENCY TEXT: AT WAKE UP, 12.00, 15.00, 18.00, 21.00
     Route: 065
  17. COMTAN [Concomitant]
     Active Substance: ENTACAPONE
     Indication: Parkinson^s disease
     Dosage: 4 TIMES A DAY WITH EACH DOSE OF PROLOPA
     Route: 065

REACTIONS (10)
  - Urinary tract infection [Unknown]
  - Freezing phenomenon [Recovering/Resolving]
  - Device connection issue [Unknown]
  - Weight increased [Unknown]
  - Off label use [Unknown]
  - Device dislocation [Unknown]
  - On and off phenomenon [Unknown]
  - Enteral nutrition [Unknown]
  - Dyskinesia [Not Recovered/Not Resolved]
  - Therapeutic product effect incomplete [Unknown]

NARRATIVE: CASE EVENT DATE: 20230301
